FAERS Safety Report 8423652-8 (Version None)
Quarter: 2012Q2

REPORT INFORMATION
  Report Type: 
  Country: None (occurrence: None)
  Receive Date: 20120608
  Receipt Date: 20120606
  Transmission Date: 20120825
  Serious: Yes (Death, Hospitalization)
  Sender: FDA-Public Use
  Company Number: PHHY2012GR025523

PATIENT
  Age: 74 Year
  Sex: Male

DRUGS (5)
  1. VANCOMYCIN [Suspect]
     Indication: STAPHYLOCOCCAL BACTERAEMIA
  2. AZATHIOPRINE [Concomitant]
  3. GENTAMICIN [Concomitant]
     Indication: ANTIBIOTIC THERAPY
  4. CIPROFLOXACIN [Concomitant]
     Indication: ANTIBIOTIC THERAPY
  5. CORTISONE ACETATE [Suspect]

REACTIONS (14)
  - KLEBSIELLA INFECTION [None]
  - PYREXIA [None]
  - STAPHYLOCOCCAL BACTERAEMIA [None]
  - TRICHOSPORON INFECTION [None]
  - HYPOXIA [None]
  - PLATELET COUNT DECREASED [None]
  - HYPONATRAEMIA [None]
  - ACINETOBACTER INFECTION [None]
  - HAEMATOCRIT DECREASED [None]
  - MULTI-ORGAN DISORDER [None]
  - DYSPNOEA [None]
  - IMMUNE SYSTEM DISORDER [None]
  - SEPTIC SHOCK [None]
  - FUNGAEMIA [None]
